FAERS Safety Report 8389704-6 (Version None)
Quarter: 2012Q2

REPORT INFORMATION
  Report Type: 
  Country: None (occurrence: None)
  Receive Date: 20120529
  Receipt Date: 20120514
  Transmission Date: 20120825
  Serious: Yes (Other)
  Sender: FDA-Public Use
  Company Number: DE-ASTELLAS-2012EU003513

PATIENT
  Sex: Male
  Weight: 61 kg

DRUGS (9)
  1. TACROLIMUS [Suspect]
     Dosage: 6 MG, UNKNOWN/D
     Route: 048
     Dates: start: 20091001
  2. CELLCEPT [Suspect]
     Dosage: 500 MG, BID
     Route: 048
     Dates: start: 20090529
  3. TACROLIMUS [Suspect]
     Dosage: 9 MG, UNKNOWN/D
     Route: 048
     Dates: start: 20090929
  4. TACROLIMUS [Suspect]
     Dosage: 8 MG, UNKNOWN/D
     Route: 048
     Dates: start: 20090930
  5. PREDNISOLONE [Suspect]
     Dosage: 7.5 MG, UID/QD
     Route: 048
     Dates: start: 20090529
  6. PREDNISOLONE [Suspect]
     Dosage: 20 MG, UNKNOWN/D
     Route: 048
     Dates: start: 20091015
  7. TACROLIMUS [Suspect]
     Dosage: 12 MG, UID/QD
     Route: 048
     Dates: start: 20090529
  8. TACROLIMUS [Suspect]
     Dosage: UNK
     Route: 048
     Dates: end: 20091016
  9. SIMULECT [Suspect]
     Dosage: 20 MG, UID/QD
     Route: 042
     Dates: start: 20090528

REACTIONS (1)
  - RENAL TUBULAR DISORDER [None]
